FAERS Safety Report 7043798-9 (Version None)
Quarter: 2010Q4

REPORT INFORMATION
  Report Type: 
  Country: None (occurrence: None)
  Receive Date: 20101008
  Receipt Date: 20101008
  Transmission Date: 20110411
  Serious: No
  Sender: FDA-Public Use
  Company Number: None

PATIENT
  Sex: Male
  Weight: 86.1834 kg

DRUGS (2)
  1. TAMSULOSIN HCL [Suspect]
     Indication: NOCTURIA
     Dosage: 0.4 MG BY MOUTH WHEN PHARM CHANGED RX TO GENERIC MEDICINE
     Route: 048
  2. FLOMAX [Suspect]

REACTIONS (3)
  - DRUG EFFECT DECREASED [None]
  - NOCTURIA [None]
  - PRODUCT SUBSTITUTION ISSUE [None]
